FAERS Safety Report 18423978 (Version 1)
Quarter: 2020Q4

REPORT INFORMATION
  Report Type: Spontaneous
  Country: CN (occurrence: CN)
  Receive Date: 20201025
  Receipt Date: 20201025
  Transmission Date: 20210114
  Serious: Yes (Other)
  Sender: FDA-Public Use
  Company Number: CN-NORTHSTAR HEALTHCARE HOLDINGS-CN-2020NSR000026

PATIENT
  Age: 51 Year
  Sex: Male

DRUGS (3)
  1. ALLOPURINOL. [Suspect]
     Active Substance: ALLOPURINOL
     Indication: GOUT
     Dosage: 100 MG, BID
     Route: 048
  2. ALLOPURINOL. [Suspect]
     Active Substance: ALLOPURINOL
     Indication: CHRONIC KIDNEY DISEASE
  3. ALLOPURINOL. [Suspect]
     Active Substance: ALLOPURINOL
     Indication: URATE NEPHROPATHY

REACTIONS (6)
  - Photophobia [Recovered/Resolved]
  - Refraction disorder [Recovered/Resolved]
  - Blepharospasm [Recovered/Resolved]
  - Lacrimation increased [Recovered/Resolved]
  - Apraxia [Recovered/Resolved]
  - Conjunctivitis [Recovered/Resolved]
